FAERS Safety Report 5229045-9 (Version None)
Quarter: 2007Q1

REPORT INFORMATION
  Report Type: 
  Country: None (occurrence: None)
  Receive Date: 20070205
  Receipt Date: 20070205
  Transmission Date: 20070707
  Serious: Yes (Other)
  Sender: FDA-Public Use
  Company Number: US-GLAXOSMITHKLINE-A0638100A

PATIENT
  Age: 56 Year
  Sex: Male

DRUGS (1)
  1. CITRUCEL REGULAR SUSPENSION [Suspect]
     Indication: GASTROINTESTINAL DISORDER
     Route: 048

REACTIONS (6)
  - ABDOMINAL DISTENSION [None]
  - ABDOMINAL PAIN UPPER [None]
  - MEDICATION RESIDUE [None]
  - PAINFUL DEFAECATION [None]
  - RECTAL HAEMORRHAGE [None]
  - SKIN LACERATION [None]
